FAERS Safety Report 6055507-0 (Version None)
Quarter: 2009Q1

REPORT INFORMATION
  Report Type: 
  Country: None (occurrence: None)
  Receive Date: 20090128
  Receipt Date: 20090122
  Transmission Date: 20090719
  Serious: Yes (Life-Threatening, Disabling)
  Sender: FDA-Public Use
  Company Number: A0753897A

PATIENT
  Age: 44 Year
  Sex: Male

DRUGS (4)
  1. LAMICTAL [Suspect]
     Indication: EPILEPSY
     Dosage: 100MG PER DAY
     Route: 048
     Dates: start: 20080501
  2. LORTAB [Concomitant]
  3. MILK THISTLE [Concomitant]
  4. CENTRUM [Concomitant]

REACTIONS (5)
  - DEPRESSION [None]
  - DISABILITY [None]
  - SELF-INJURIOUS IDEATION [None]
  - SPEECH DISORDER [None]
  - TREMOR [None]
